FAERS Safety Report 11381273 (Version 1)
Quarter: 2015Q3

REPORT INFORMATION
  Report Type: Spontaneous
  Country: US (occurrence: US)
  Receive Date: 20150814
  Receipt Date: 20150814
  Transmission Date: 20151125
  Serious: No
  Sender: FDA-Public Use
  Company Number: US-JNJFOC-20150715005

PATIENT
  Age: 19 Year
  Sex: Female
  Weight: 109.32 kg

DRUGS (1)
  1. REMICADE [Suspect]
     Active Substance: INFLIXIMAB
     Indication: ANKYLOSING SPONDYLITIS
     Route: 042
     Dates: start: 201503

REACTIONS (2)
  - Drug dose omission [Unknown]
  - Vascular access complication [Unknown]

NARRATIVE: CASE EVENT DATE: 20150716
